FAERS Safety Report 11529452 (Version 1)
Quarter: 2015Q3

REPORT INFORMATION
  Report Type: Spontaneous
  Country: US (occurrence: US)
  Receive Date: 20150921
  Receipt Date: 20150921
  Transmission Date: 20151125
  Serious: No
  Sender: FDA-Public Use
  Company Number: US-HORIZON-VIM-0092-2015

PATIENT
  Age: 58 Year
  Sex: Female

DRUGS (11)
  1. CITRULLINE [Concomitant]
     Active Substance: CITRULLINE
  2. WELLBUTRIN [Concomitant]
     Active Substance: BUPROPION HYDROCHLORIDE
  3. LEVOTHYROXINE. [Concomitant]
     Active Substance: LEVOTHYROXINE
  4. PRAVASTATIN [Concomitant]
     Active Substance: PRAVASTATIN\PRAVASTATIN SODIUM
  5. VIMOVO [Suspect]
     Active Substance: ESOMEPRAZOLE MAGNESIUM\NAPROXEN
     Indication: MUSCLE STRAIN
     Dosage: ONCE DAILY
     Route: 048
     Dates: start: 20150831
  6. OMEPRAZOLE. [Concomitant]
     Active Substance: OMEPRAZOLE
  7. ZYRTEC [Concomitant]
     Active Substance: CETIRIZINE HYDROCHLORIDE
  8. TROKENDI [Concomitant]
     Active Substance: TOPIRAMATE
  9. RAMIPRIL. [Concomitant]
     Active Substance: RAMIPRIL
  10. AREDS2 VITAMIN [Concomitant]
  11. PHENTERMINE. [Concomitant]
     Active Substance: PHENTERMINE

REACTIONS (1)
  - Intentional product misuse [Unknown]
